FAERS Safety Report 21404714 (Version 1)
Quarter: 2022Q3

REPORT INFORMATION
  Report Type: Spontaneous
  Country: US (occurrence: None)
  Receive Date: 20220930
  Receipt Date: 20220930
  Transmission Date: 20221026
  Serious: Yes (Hospitalization)
  Sender: FDA-Public Use
  Company Number: None

PATIENT
  Age: 68 Year
  Sex: Female

DRUGS (14)
  1. AMBRISENTAN [Suspect]
     Active Substance: AMBRISENTAN
     Indication: Pulmonary hypertension
     Dosage: FREQUENCY : DAILY;?
     Route: 048
     Dates: start: 20150421
  2. SILDENAFIL [Concomitant]
     Active Substance: SILDENAFIL
  3. NORTRIPTYLINE [Concomitant]
     Active Substance: NORTRIPTYLINE
  4. FUROSEMIDE [Concomitant]
     Active Substance: FUROSEMIDE
  5. ambuterol HFA [Concomitant]
  6. MVI-minerals [Concomitant]
  7. LEVOTHYROXINE [Concomitant]
     Active Substance: LEVOTHYROXINE
  8. PANTOPRAZOLE [Concomitant]
     Active Substance: PANTOPRAZOLE
  9. MYCOPHENOLIC ACID [Concomitant]
     Active Substance: MYCOPHENOLIC ACID
  10. octerotide [Concomitant]
  11. lidocaine top oint [Concomitant]
  12. hydrocortisone top cream [Concomitant]
  13. dazidox [Concomitant]
  14. honey top paste [Concomitant]

REACTIONS (4)
  - Small intestinal obstruction [None]
  - Gastrointestinal wall thickening [None]
  - Inflammation [None]
  - Intestinal perforation [None]

NARRATIVE: CASE EVENT DATE: 20220910
